FAERS Safety Report 12277121 (Version 1)
Quarter: 2016Q2

REPORT INFORMATION
  Report Type: Spontaneous
  Country: US (occurrence: US)
  Receive Date: 20160418
  Receipt Date: 20160418
  Transmission Date: 20160815
  Serious: Yes (Death, Hospitalization)
  Sender: FDA-Public Use
  Company Number: US-B.I. PHARMACEUTICALS,INC./RIDGEFIELD-2016-BI-23185BP

PATIENT
  Age: 85 Year
  Sex: Female

DRUGS (1)
  1. COMBIVENT [Suspect]
     Active Substance: ALBUTEROL SULFATE\IPRATROPIUM BROMIDE
     Indication: PRODUCT USED FOR UNKNOWN INDICATION
     Dosage: DOSE PER APPLICATION: 20 MCG / 100 MCG
     Route: 055
     Dates: start: 2015

REACTIONS (3)
  - Renal disorder [Unknown]
  - Cardiac disorder [Unknown]
  - Death [Fatal]

NARRATIVE: CASE EVENT DATE: 20160319
